FAERS Safety Report 4393598-3 (Version None)
Quarter: 2004Q3

REPORT INFORMATION
  Report Type: 
  Country: None (occurrence: None)
  Receive Date: 20040707
  Receipt Date: 20040707
  Transmission Date: 20050211
  Serious: Yes (Hospitalization)
  Sender: FDA-Public Use
  Company Number: None

PATIENT
  Age: 34 Year
  Sex: Female
  Weight: 72.5755 kg

DRUGS (2)
  1. LACTULOSE [Suspect]
     Indication: HAEMORRHOID OPERATION
     Dates: start: 20040626, end: 20040717
  2. LACTULOSE [Suspect]
     Indication: POSTOPERATIVE CARE
     Dates: start: 20040626, end: 20040717

REACTIONS (2)
  - HAEMORRHAGE [None]
  - MEDICATION ERROR [None]
